FAERS Safety Report 17823303 (Version 1)
Quarter: 2020Q2

REPORT INFORMATION
  Report Type: Spontaneous
  Country: US (occurrence: US)
  Receive Date: 20200523
  Receipt Date: 20200523
  Transmission Date: 20200714
  Serious: No
  Sender: FDA-Public Use
  Company Number: None

PATIENT
  Age: 40 Year
  Weight: 81 kg

DRUGS (5)
  1. LUNG SUPPORT [Concomitant]
  2. NAC [ACETYLCYSTEINE] [Concomitant]
     Active Substance: ACETYLCYSTEINE
  3. ARMOUR THYROID 60MG MEDICAL MARIJUANA PRN [Concomitant]
  4. NP THYROID [Suspect]
     Active Substance: LEVOTHYROXINE\LIOTHYRONINE
     Indication: HYPOTHYROIDISM
     Dosage: ?          QUANTITY:30 TABLET(S);?
     Route: 048
     Dates: start: 20200501, end: 20200523
  5. FISH OIL [Concomitant]
     Active Substance: FISH OIL

REACTIONS (4)
  - Irritability [None]
  - Fatigue [None]
  - Palpitations [None]
  - Suicidal ideation [None]

NARRATIVE: CASE EVENT DATE: 20200517
